FAERS Safety Report 6496550-7 (Version None)
Quarter: 2009Q4

REPORT INFORMATION
  Report Type: 
  Country: None (occurrence: None)
  Receive Date: 20091210
  Receipt Date: 20091201
  Transmission Date: 20100525
  Serious: Yes (Hospitalization)
  Sender: FDA-Public Use
  Company Number: 2009US003389

PATIENT
  Age: 15 Year
  Sex: Male

DRUGS (25)
  1. AMBISOME [Suspect]
     Indication: CANDIDIASIS
     Dosage: 200 MG, UID/QD, IV DRIP
     Route: 041
     Dates: start: 20090624, end: 20090629
  2. AMBISOME [Suspect]
     Dosage: 125 MG, UID/QD, IV NOS
     Route: 042
     Dates: start: 20090814, end: 20090819
  3. PROGRAF [Concomitant]
  4. SULFAMETHOXAZOLE AND TRIMETHOPRIM [Concomitant]
  5. PENTAZOCINE LACTATE [Concomitant]
  6. GANCICLOVIR [Concomitant]
  7. SOLDEM 1 (GLUCOSE, SODIUM CHLORIDE, SODIUM LACTATE) [Concomitant]
  8. NOVO HEPARIN (HEPARIN) [Concomitant]
  9. VFEND [Concomitant]
  10. FUNGUARD (MICAFUNGIN SODIUM) [Concomitant]
  11. MEROPEN (MEROPENEM TRIHYDRATE) [Concomitant]
  12. PLATELETS [Concomitant]
  13. RED BLOOD CELLS [Concomitant]
  14. NEO MINOPHAGEN C (AMINOACETIC ACID, CYSTEINE HYDROCHLORIDE, GLYCYRRHIZ [Concomitant]
  15. VICCLOX MEIJI (ACICLOVIR) [Concomitant]
  16. MAXIPEME (CEFEPIME HYDROCHLORIDE) [Concomitant]
  17. TARGOCID [Concomitant]
  18. APROVAN KOBAYASHI (NICARDIPINE HYDROCHLORIDE) [Concomitant]
  19. NEUPOGEN [Concomitant]
  20. CIPROFLOXACIN HCL [Concomitant]
  21. LEUCOVORIN CALCIUM [Concomitant]
  22. VENOGLOBULIN (IMMUNOGLOBULIN) [Concomitant]
  23. METHOTREXATE [Concomitant]
  24. ZOSYN [Concomitant]
  25. ITRACONAZOLE [Concomitant]

REACTIONS (3)
  - LUNG NEOPLASM [None]
  - PANCREATITIS ACUTE [None]
  - PYREXIA [None]
